FAERS Safety Report 8394499-6 (Version None)
Quarter: 2012Q2

REPORT INFORMATION
  Report Type: 
  Country: None (occurrence: None)
  Receive Date: 20120530
  Receipt Date: 20120525
  Transmission Date: 20120825
  Serious: Yes (Other)
  Sender: FDA-Public Use
  Company Number: PHHY2012BR045564

PATIENT
  Sex: Female
  Weight: 50 kg

DRUGS (12)
  1. EXELON [Suspect]
     Indication: MEMORY IMPAIRMENT
     Dosage: 9.5 MG, DAILY
     Route: 062
     Dates: start: 20120518
  2. CALCIUM CARBONATE W/COLECALCIFEROL [Concomitant]
     Dosage: 500 MG, QD
     Route: 048
  3. CELEBRAT [Concomitant]
     Indication: MEMORY IMPAIRMENT
     Dosage: 50 MG, QD
     Route: 048
  4. LAMIGRAM COLLYRIUM [Concomitant]
     Indication: GLAUCOMA
     Dosage: ONE DROP IN EACH EYE, IN THE MORNING AND ONE DROP IN EACH EYE AT NIGHT
  5. LOSARTAN POTASSIUM [Concomitant]
     Indication: HYPERTENSION
     Dosage: 50 MG, BID
     Route: 048
  6. MULTIVITAMIN [Concomitant]
     Indication: GLAUCOMA
     Dosage: 1 DF, QD
     Route: 048
  7. BUDESONIDE [Concomitant]
     Indication: ASTHMA
     Dosage: 400 UG, QD
  8. CALTREN [Concomitant]
     Indication: HYPERTENSION
     Dosage: 20 MG, QD
     Route: 048
  9. OCUPRESS [Concomitant]
     Indication: GLAUCOMA
     Dosage: ONE DROP IN EACH EYE, IN THE MORNING AND ONE DROP IN EACH EYE AT NIGHT
  10. BUDESONIDE [Concomitant]
     Indication: ASTHMA
     Dosage: 1 DF, QD
  11. CLORANA [Concomitant]
     Indication: HYPERTENSION
     Dosage: 25 MG, QD
     Route: 048
  12. BUDESONIDE [Concomitant]
     Indication: BRONCHITIS

REACTIONS (6)
  - FAECAL INCONTINENCE [None]
  - HYPERTENSION [None]
  - VOMITING [None]
  - HALLUCINATION [None]
  - DIARRHOEA [None]
  - DIZZINESS [None]
